FAERS Safety Report 8245103-9 (Version None)
Quarter: 2012Q1

REPORT INFORMATION
  Report Type: 
  Country: None (occurrence: None)
  Receive Date: 20120329
  Receipt Date: 20120326
  Transmission Date: 20120608
  Serious: Yes (Hospitalization)
  Sender: FDA-Public Use
  Company Number: SE-GLAXOSMITHKLINE-B0784834A

PATIENT
  Sex: Male

DRUGS (2)
  1. LOSARTAN POTASSIUM [Concomitant]
     Dosage: 50MG PER DAY
     Dates: start: 20120312
  2. VOTRIENT [Suspect]
     Indication: SYNOVIAL SARCOMA
     Dosage: 800MG PER DAY
     Route: 065
     Dates: start: 20120112, end: 20120220

REACTIONS (1)
  - PNEUMOTHORAX [None]
